FAERS Safety Report 14320124 (Version 1)
Quarter: 2017Q4

REPORT INFORMATION
  Report Type: Spontaneous
  Country: US (occurrence: US)
  Receive Date: 20171222
  Receipt Date: 20171222
  Transmission Date: 20180321
  Serious: Yes (Other)
  Sender: FDA-Public Use
  Company Number: US-PFIZER INC-2017542160

PATIENT

DRUGS (1)
  1. LYRICA [Suspect]
     Active Substance: PREGABALIN
     Indication: BACK DISORDER
     Dosage: 75 MG, 2X/DAY

REACTIONS (15)
  - Suicidal ideation [Unknown]
  - Product use in unapproved indication [Unknown]
  - Crying [Unknown]
  - Stress [Unknown]
  - Chest pain [Unknown]
  - Affective disorder [Unknown]
  - Mania [Unknown]
  - Screaming [Unknown]
  - Nervousness [Unknown]
  - Emotional disorder [Unknown]
  - Urinary incontinence [Unknown]
  - Feeling abnormal [Unknown]
  - Vision blurred [Unknown]
  - Laryngitis [Unknown]
  - Homicidal ideation [Unknown]
